FAERS Safety Report 4543458-X (Version None)
Quarter: 2005Q1

REPORT INFORMATION
  Report Type: 
  Country: None (occurrence: None)
  Receive Date: 20050103
  Receipt Date: 20041227
  Transmission Date: 20050727
  Serious: Yes (Life-Threatening, Hospitalization, Disabling)
  Sender: FDA-Public Use
  Company Number: US-MERCK-0412USA02958

PATIENT
  Age: 62 Year
  Sex: Male

DRUGS (5)
  1. VIOXX [Suspect]
     Indication: SPINAL FUSION SURGERY
     Route: 048
     Dates: start: 20020601, end: 20030401
  2. VIOXX [Suspect]
     Indication: KNEE OPERATION
     Route: 048
     Dates: start: 20020601, end: 20030401
  3. NEURONTIN [Concomitant]
     Route: 065
  4. PROTONIX [Concomitant]
     Route: 065
  5. CODEINE [Concomitant]
     Route: 065

REACTIONS (2)
  - CARDIAC DISORDER [None]
  - SYNCOPE [None]
